FAERS Safety Report 7394943-7 (Version None)
Quarter: 2011Q2

REPORT INFORMATION
  Report Type: 
  Country: None (occurrence: None)
  Receive Date: 20110405
  Receipt Date: 20110330
  Transmission Date: 20111010
  Serious: No
  Sender: FDA-Public Use
  Company Number: US-PFIZER INC-US-WYE-H15743710

PATIENT
  Sex: Male
  Weight: 73.5 kg

DRUGS (4)
  1. AVAPRO [Concomitant]
  2. METOPROLOL [Concomitant]
  3. PRISTIQ [Suspect]
     Indication: DEPRESSION
     Route: 065
  4. FLEXERIL [Concomitant]

REACTIONS (4)
  - HYPERGLYCAEMIA [None]
  - HYPERTENSION [None]
  - NONSPECIFIC REACTION [None]
  - BLOOD SODIUM DECREASED [None]
